FAERS Safety Report 15811882 (Version 1)
Quarter: 2019Q1

REPORT INFORMATION
  Report Type: Spontaneous
  Country: US (occurrence: US)
  Receive Date: 20190111
  Receipt Date: 20190111
  Transmission Date: 20190417
  Serious: No
  Sender: FDA-Public Use
  Company Number: US-BAYER-2019-006326

PATIENT
  Age: 89 Year
  Sex: Female
  Weight: 113 kg

DRUGS (3)
  1. MIRALAX [Suspect]
     Active Substance: POLYETHYLENE GLYCOL 3350
     Indication: GASTROINTESTINAL DISORDER
     Dosage: UNK
     Route: 048
     Dates: start: 2017
  2. SENOKOT [Suspect]
     Active Substance: SENNOSIDES
  3. DULCOLAX (BISACODYL) [Suspect]
     Active Substance: BISACODYL

REACTIONS (2)
  - Drug effect delayed [Unknown]
  - Incorrect product administration duration [Unknown]

NARRATIVE: CASE EVENT DATE: 2017
